FAERS Safety Report 18416567 (Version 1)
Quarter: 2020Q4

REPORT INFORMATION
  Report Type: Report from Study
  Country: GB (occurrence: GB)
  Receive Date: 20201022
  Receipt Date: 20201022
  Transmission Date: 20210114
  Serious: Yes (Death)
  Sender: FDA-Public Use
  Company Number: NVSC2020GB284347

PATIENT
  Sex: Female

DRUGS (1)
  1. COSENTYX [Suspect]
     Active Substance: SECUKINUMAB
     Indication: PSORIATIC ARTHROPATHY
     Dosage: 150 MG, QMO
     Route: 058
     Dates: start: 20171025

REACTIONS (6)
  - Liver injury [Fatal]
  - Pneumonia [Fatal]
  - Fall [Fatal]
  - Cerebrovascular accident [Fatal]
  - Sepsis [Fatal]
  - Renal injury [Fatal]

NARRATIVE: CASE EVENT DATE: 2019
